FAERS Safety Report 21610666 (Version 1)
Quarter: 2022Q4

REPORT INFORMATION
  Report Type: Spontaneous
  Country: US (occurrence: US)
  Receive Date: 20221117
  Receipt Date: 20221117
  Transmission Date: 20230112
  Serious: No
  Sender: FDA-Public Use
  Company Number: US-MYLANLABS-2022M1127080

PATIENT
  Sex: Female

DRUGS (19)
  1. LIPITOR [Suspect]
     Active Substance: ATORVASTATIN CALCIUM
     Indication: Product used for unknown indication
     Dosage: UNK
     Route: 065
  2. NORVASC [Suspect]
     Active Substance: AMLODIPINE BESYLATE
     Indication: Product used for unknown indication
     Dosage: UNK
     Route: 065
  3. AMLODIPINE [Concomitant]
     Active Substance: AMLODIPINE BESYLATE
     Indication: Essential hypertension
     Dosage: 5 MILLIGRAM, QD
     Route: 048
     Dates: start: 20210922
  4. ASCORBIC ACID [Concomitant]
     Active Substance: ASCORBIC ACID
     Dosage: 500 MILLIGRAM, QD
     Route: 048
  5. ATORVASTATIN [Concomitant]
     Active Substance: ATORVASTATIN
     Indication: Hyperlipidaemia
     Dosage: 10 MILLIGRAM, QD
     Route: 048
     Dates: start: 20210106
  6. CALCIUM CARBONATE\CHOLECALCIFEROL [Concomitant]
     Active Substance: CALCIUM CARBONATE\CHOLECALCIFEROL
     Dosage: 500 MILLIGRAM
     Route: 048
  7. CLONIDINE HYDROCHLORIDE [Concomitant]
     Active Substance: CLONIDINE HYDROCHLORIDE
     Indication: Essential hypertension
     Dosage: 0.1 MILLIGRAM, HS
     Route: 048
     Dates: start: 20210826
  8. DAPAGLIFLOZIN [Concomitant]
     Active Substance: DAPAGLIFLOZIN
     Indication: Type 2 diabetes mellitus
     Dosage: 10 MILLIGRAM, QD
     Route: 065
     Dates: start: 20210727
  9. DICLOFENAC SODIUM [Concomitant]
     Active Substance: DICLOFENAC SODIUM
     Dosage: 4 GRAM
     Route: 061
  10. INSULIN GLARGINE [Concomitant]
     Active Substance: INSULIN GLARGINE
     Indication: Type 2 diabetes mellitus
     Dosage: 30 INTERNATIONAL UNIT, HS
     Route: 065
  11. INSULIN GLARGINE [Concomitant]
     Active Substance: INSULIN GLARGINE
     Indication: Hyperglycaemia
  12. LOSARTAN [Concomitant]
     Active Substance: LOSARTAN
     Indication: Essential hypertension
     Dosage: 50 MILLIGRAM, QD
     Route: 048
  13. MELOXICAM [Concomitant]
     Active Substance: MELOXICAM
     Dosage: 1 DOSAGE FORM, QD
     Route: 048
  14. METFORMIN [Concomitant]
     Active Substance: METFORMIN HYDROCHLORIDE
     Indication: Type 2 diabetes mellitus
     Dosage: 500 MILLIGRAM, BID
     Route: 048
     Dates: start: 20220419
  15. METFORMIN [Concomitant]
     Active Substance: METFORMIN HYDROCHLORIDE
     Indication: Hyperglycaemia
  16. METOCLOPRAMIDE [Concomitant]
     Active Substance: METOCLOPRAMIDE
     Dosage: 1 TABLET BY MOUTH FOUR TIMES DAILY
     Route: 065
     Dates: start: 20210916
  17. NITROFURANTOINE M.C. [Concomitant]
     Indication: Urinary tract disorder
     Dosage: 1 DOSAGE FORM, BID
     Route: 065
     Dates: start: 20210208
  18. POLYETHYLENE GLYCOL [Concomitant]
     Active Substance: POLYETHYLENE GLYCOL
     Indication: Constipation
     Dosage: 17 GRAM, BID
     Route: 048
     Dates: start: 20220721
  19. SENNOSIDES [Concomitant]
     Active Substance: SENNOSIDES
     Indication: Constipation
     Dosage: 2 DOSAGE FORM, QD
     Route: 048
     Dates: start: 20220721

REACTIONS (2)
  - Osteoarthritis [Unknown]
  - Rotator cuff syndrome [Unknown]
